FAERS Safety Report 6081107-2 (Version None)
Quarter: 2009Q1

REPORT INFORMATION
  Report Type: 
  Country: None (occurrence: None)
  Receive Date: 20090114
  Receipt Date: 20071127
  Transmission Date: 20090719
  Serious: Yes (Hospitalization)
  Sender: FDA-Public Use
  Company Number: 213479

PATIENT
  Age: 13 Year
  Sex: Female
  Weight: 59 kg

DRUGS (6)
  1. NOVOLIN N [Suspect]
     Indication: TYPE 1 DIABETES MELLITUS
     Dosage: 68 IU, QD, SUBCUTANEOUS; 84 IU, QD, SUBCUTANEOUS
     Route: 058
     Dates: start: 20000101, end: 20001101
  2. NOVOLIN N [Suspect]
     Indication: TYPE 1 DIABETES MELLITUS
     Dosage: 68 IU, QD, SUBCUTANEOUS; 84 IU, QD, SUBCUTANEOUS
     Route: 058
     Dates: start: 20001101
  3. HUMALOG [Concomitant]
  4. NOVOPEN 3 (INSULIN DELIVERY DEVICE) [Concomitant]
  5. NOVOFINE 30 (NEEDLE) [Concomitant]
  6. SYNTHROID [Concomitant]

REACTIONS (4)
  - BLOOD GLUCOSE INCREASED [None]
  - DEHYDRATION [None]
  - KETOACIDOSIS [None]
  - POLYURIA [None]
